FAERS Safety Report 23021095 (Version 1)
Quarter: 2023Q4

REPORT INFORMATION
  Report Type: Spontaneous
  Country: BR (occurrence: BR)
  Receive Date: 20231003
  Receipt Date: 20231003
  Transmission Date: 20240109
  Serious: Yes (Other)
  Sender: FDA-Public Use
  Company Number: BR-TAKEDA-2023TUS090902

PATIENT
  Age: 71 Year
  Sex: Female
  Weight: 58 kg

DRUGS (5)
  1. PANTOPRAZOLE [Suspect]
     Active Substance: PANTOPRAZOLE
     Dosage: UNK
     Route: 065
  2. VONOPRAZAN FUMARATE [Suspect]
     Active Substance: VONOPRAZAN FUMARATE
     Indication: Gastritis
     Dosage: 20 MG, 1X/DAY
     Route: 065
     Dates: start: 20230827
  3. VONOPRAZAN FUMARATE [Suspect]
     Active Substance: VONOPRAZAN FUMARATE
     Indication: Oesophagitis
  4. OMEPRAZOLE [Suspect]
     Active Substance: OMEPRAZOLE
     Dosage: UNK
  5. EZETIMIBE [Concomitant]
     Active Substance: EZETIMIBE
     Indication: Blood cholesterol abnormal
     Dosage: 10 MG

REACTIONS (26)
  - Helminthic infection [Unknown]
  - Wrist fracture [Unknown]
  - Flatulence [Unknown]
  - Gut fermentation syndrome [Unknown]
  - Labyrinthitis [Unknown]
  - Dizziness [Unknown]
  - Illness [Unknown]
  - Pain in extremity [Unknown]
  - Insomnia [Unknown]
  - Malaise [Unknown]
  - Throat irritation [Unknown]
  - Chest pain [Unknown]
  - Abdominal pain [Not Recovered/Not Resolved]
  - Fatigue [Unknown]
  - Blood pressure decreased [Unknown]
  - Myalgia [Unknown]
  - Osteoporosis [Unknown]
  - Off label use [Unknown]
  - Drug ineffective for unapproved indication [Unknown]
  - Gastrointestinal disorder [Unknown]
  - Drug ineffective [Unknown]
  - Fall [Unknown]
  - Headache [Unknown]
  - Constipation [Unknown]
  - Gastritis [Unknown]
  - Oesophagitis [Unknown]
